FAERS Safety Report 8744329 (Version 2)
Quarter: 2013Q4

REPORT INFORMATION
  Report Type: Report from Study
  Country: JP (occurrence: JP)
  Receive Date: 20120825
  Receipt Date: 20131108
  Transmission Date: 20140711
  Serious: Yes (Other)
  Sender: FDA-Public Use
  Company Number: JP-009507513-1208JPN005503

PATIENT
  Age: 58 Year
  Sex: Female
  Weight: 45 kg

DRUGS (10)
  1. REBETOL [Suspect]
     Indication: HEPATITIS C
     Dosage: 200 MG IN MORNING, 400 MG IN EVENING
     Route: 048
     Dates: start: 20110317, end: 20110414
  2. REBETOL [Suspect]
     Dosage: 200 MG, BID
     Route: 048
     Dates: start: 20110415
  3. FERON [Suspect]
     Indication: HEPATITIS C
     Dosage: 6 MILLION IU, QD
     Route: 041
     Dates: start: 20110317, end: 20110330
  4. FERON [Suspect]
     Dosage: 6 MILLION IU, TIW
     Route: 041
     Dates: start: 20110401
  5. DEPAS [Concomitant]
     Indication: DEPRESSION
     Dosage: 0.5 MG, PRN
     Route: 048
  6. RHEUMATREX [Concomitant]
     Indication: RHEUMATOID ARTHRITIS
     Dosage: 4 MG, QW
     Route: 048
     Dates: start: 2010
  7. PROGRAF [Concomitant]
     Indication: RHEUMATOID ARTHRITIS
     Dosage: 1 MG, QD
     Route: 048
     Dates: start: 2010
  8. NAPA (ACETAMINOPHEN) [Concomitant]
     Indication: PROPHYLAXIS
     Dosage: 0.5 G, QD
     Route: 048
     Dates: start: 20100817, end: 20120330
  9. NAPA (ACETAMINOPHEN) [Concomitant]
     Dosage: 0.5 MG, TIW
     Route: 048
     Dates: start: 20110401
  10. TAKEPRON [Concomitant]
     Indication: PROPHYLAXIS
     Dosage: 15 MG, QD
     Route: 048
     Dates: start: 20110317

REACTIONS (1)
  - Neutrophil count decreased [Recovered/Resolved]
